FAERS Safety Report 4491772-9 (Version None)
Quarter: 2004Q4

REPORT INFORMATION
  Report Type: 
  Country: None (occurrence: None)
  Receive Date: 20041101
  Receipt Date: 20041004
  Transmission Date: 20050328
  Serious: Yes (Hospitalization)
  Sender: FDA-Public Use
  Company Number: 2004IM00888

PATIENT
  Age: 89 Year
  Sex: Male

DRUGS (1)
  1. ACTIMMUNE [Suspect]
     Indication: LUNG DISORDER
     Dosage: 100 UG;TIW; SUBCUTANEOUS
     Route: 058
     Dates: start: 20031023, end: 20040824

REACTIONS (1)
  - CEREBROVASCULAR ACCIDENT [None]
